FAERS Safety Report 12109415 (Version 1)
Quarter: 2016Q1

REPORT INFORMATION
  Report Type: Spontaneous
  Country: US (occurrence: None)
  Receive Date: 20160223
  Receipt Date: 20160223
  Transmission Date: 20160526
  Serious: Yes (Disabling, Other)
  Sender: FDA-Public Use
  Company Number: None

PATIENT
  Sex: Male

DRUGS (1)
  1. TYSABRI [Suspect]
     Active Substance: NATALIZUMAB
     Indication: RELAPSING-REMITTING MULTIPLE SCLEROSIS
     Dosage: INFUSION 1 TIME/MONTH
     Dates: start: 20151204

REACTIONS (10)
  - Dizziness [None]
  - Alopecia [None]
  - Pruritus [None]
  - Gait disturbance [None]
  - Blister [None]
  - Muscular weakness [None]
  - Rash erythematous [None]
  - Scratch [None]
  - Skin exfoliation [None]
  - Scar [None]

NARRATIVE: CASE EVENT DATE: 20151230
